FAERS Safety Report 13614969 (Version 1)
Quarter: 2017Q2

REPORT INFORMATION
  Report Type: Spontaneous
  Country: HR (occurrence: HR)
  Receive Date: 20170606
  Receipt Date: 20170606
  Transmission Date: 20170830
  Serious: Yes (Other)
  Sender: FDA-Public Use
  Company Number: HR-GLAXOSMITHKLINE-HR2017GSK084832

PATIENT
  Sex: Female

DRUGS (3)
  1. VOLTAREN FORTE [Suspect]
     Active Substance: DICLOFENAC SODIUM
     Indication: ARTHRITIS
     Dosage: 50 MG, UNK
     Route: 048
     Dates: start: 2008
  2. DECORTIN [Concomitant]
     Active Substance: PREDNISONE
  3. METHOTREXATE. [Concomitant]
     Active Substance: METHOTREXATE

REACTIONS (3)
  - Haematochezia [Recovered/Resolved]
  - Medication error [Recovered/Resolved]
  - Haemorrhoids [Recovered/Resolved]

NARRATIVE: CASE EVENT DATE: 2008
